FAERS Safety Report 21336162 (Version 1)
Quarter: 2022Q3

REPORT INFORMATION
  Report Type: Spontaneous
  Country: MA (occurrence: MA)
  Receive Date: 20220915
  Receipt Date: 20220915
  Transmission Date: 20221027
  Serious: Yes (Other)
  Sender: FDA-Public Use
  Company Number: MA-BRISTOL-MYERS SQUIBB COMPANY-2022-106430

PATIENT

DRUGS (1)
  1. ELIQUIS [Suspect]
     Active Substance: APIXABAN
     Indication: Pulmonary embolism
     Route: 065

REACTIONS (2)
  - Drug ineffective [Unknown]
  - Pulmonary arterial hypertension [Unknown]
